FAERS Safety Report 5900749-5 (Version None)
Quarter: 2008Q3

REPORT INFORMATION
  Report Type: 
  Country: None (occurrence: None)
  Receive Date: 20080929
  Receipt Date: 20080918
  Transmission Date: 20090109
  Serious: Yes (Other)
  Sender: FDA-Public Use
  Company Number: JP-MERCK-0808USA04635

PATIENT
  Age: 78 Year
  Sex: Female

DRUGS (17)
  1. PEPCID RPD [Suspect]
     Indication: ULCER
     Route: 048
     Dates: start: 20080708, end: 20080711
  2. ATROPINE SULFATE [Suspect]
     Indication: PREMEDICATION
     Route: 030
     Dates: start: 20080707
  3. ATROPINE SULFATE [Suspect]
     Route: 042
     Dates: start: 20080707
  4. NORVASC [Concomitant]
     Indication: HYPERTENSION
     Route: 048
  5. DIOVAN [Concomitant]
     Indication: HYPERTENSION
     Route: 048
  6. ATARAX [Suspect]
     Indication: PREMEDICATION
     Route: 030
     Dates: start: 20080707
  7. ATARAX [Suspect]
     Indication: ANALGESIA
     Route: 030
     Dates: start: 20080707
  8. PROPOFOL [Suspect]
     Indication: INDUCTION OF ANAESTHESIA
     Route: 042
     Dates: start: 20080707
  9. ULTIVA [Suspect]
     Indication: INDUCTION AND MAINTENANCE OF ANAESTHESIA
     Route: 065
     Dates: start: 20080707
  10. MUSCULAX [Suspect]
     Indication: INDUCTION OF ANAESTHESIA
     Route: 042
     Dates: start: 20080707
  11. SEVOFLURANE [Suspect]
     Indication: MAINTENANCE OF ANAESTHESIA
     Route: 065
     Dates: start: 20080707
  12. ROPION [Suspect]
     Indication: ANALGESIA
     Route: 042
     Dates: start: 20080707
  13. NEOSTIGMINE BROMIDE [Suspect]
     Route: 042
     Dates: start: 20080707
  14. PENTAGIN [Suspect]
     Indication: ANALGESIA
     Route: 030
     Dates: start: 20080707
  15. SEFMAZON [Suspect]
     Indication: ANTIBIOTIC LEVEL
     Route: 042
     Dates: start: 20080707, end: 20080708
  16. MUCOSTA [Suspect]
     Indication: ULCER
     Route: 048
     Dates: start: 20080708, end: 20080711
  17. PERAPRIN [Suspect]
     Indication: ULCER
     Route: 048
     Dates: start: 20080708, end: 20080711

REACTIONS (7)
  - CONVULSION [None]
  - DEPRESSED LEVEL OF CONSCIOUSNESS [None]
  - DISORIENTATION [None]
  - HYPOPHAGIA [None]
  - INAPPROPRIATE ANTIDIURETIC HORMONE SECRETION [None]
  - NAUSEA [None]
  - VOMITING [None]
